FAERS Safety Report 9344067 (Version 1)
Quarter: 2013Q2

REPORT INFORMATION
  Report Type: Spontaneous
  Country: ZA (occurrence: None)
  Receive Date: 20130610
  Receipt Date: 20130610
  Transmission Date: 20140414
  Serious: Yes (Death, Other)
  Sender: FDA-Public Use
  Company Number: 1743927

PATIENT
  Age: 70 Year
  Sex: Male

DRUGS (1)
  1. (DEXMEDETOMIDINE HYDROCHLORIDE) [Suspect]
     Indication: OFF LABEL USE
     Dates: start: 20121218, end: 20121230

REACTIONS (6)
  - Acute respiratory distress syndrome [None]
  - Laceration [None]
  - Off label use [None]
  - Procedural complication [None]
  - Unevaluable event [None]
  - Injury [None]
